FAERS Safety Report 11169965 (Version 1)
Quarter: 2015Q2

REPORT INFORMATION
  Report Type: Report from Study
  Country: CL (occurrence: CL)
  Receive Date: 20150608
  Receipt Date: 20150608
  Transmission Date: 20150821
  Serious: Yes (Other)
  Sender: FDA-Public Use
  Company Number: CL-ROCHE-1588323

PATIENT
  Age: 52 Year
  Sex: Female
  Weight: 43 kg

DRUGS (4)
  1. ACETAMINOPHEN. [Concomitant]
     Active Substance: ACETAMINOPHEN
     Indication: PALLIATIVE CARE
     Route: 048
  2. XELODA [Suspect]
     Active Substance: CAPECITABINE
     Indication: COLORECTAL CANCER
     Dosage: 14 DAYS PER CYCLE
     Route: 048
     Dates: start: 20141215
  3. TRAMADOL [Concomitant]
     Active Substance: TRAMADOL
     Indication: PALLIATIVE CARE
     Route: 048
  4. EUTIROX [Concomitant]
     Active Substance: LEVOTHYROXINE SODIUM
     Indication: HYPOTHYROIDISM
     Route: 048
     Dates: start: 2005

REACTIONS (2)
  - Drug ineffective [Unknown]
  - Neoplasm progression [Not Recovered/Not Resolved]
